FAERS Safety Report 8792576 (Version 2)
Quarter: 2015Q2

REPORT INFORMATION
  Report Type: Report from Study
  Country: US (occurrence: US)
  Receive Date: 20120918
  Receipt Date: 20150629
  Transmission Date: 20150821
  Serious: Yes (Death)
  Sender: FDA-Public Use
  Company Number: US-ROCHE-1129452

PATIENT
  Sex: Female

DRUGS (18)
  1. DECADRON [Concomitant]
     Active Substance: DEXAMETHASONE
     Route: 065
  2. KYTRIL [Concomitant]
     Active Substance: GRANISETRON HYDROCHLORIDE
     Route: 065
  3. VITAMIN B12 [Concomitant]
     Active Substance: CYANOCOBALAMIN
     Route: 065
  4. ATIVAN [Concomitant]
     Active Substance: LORAZEPAM
     Route: 065
  5. AVASTIN [Suspect]
     Active Substance: BEVACIZUMAB
     Indication: LUNG NEOPLASM MALIGNANT
     Route: 042
     Dates: start: 20060103
  6. PRAVACHOL [Concomitant]
     Active Substance: PRAVASTATIN SODIUM
     Route: 048
  7. PEMETREXED DISODIUM [Concomitant]
     Active Substance: PEMETREXED DISODIUM
     Route: 065
  8. NEURONTIN [Concomitant]
     Active Substance: GABAPENTIN
     Route: 048
  9. FOLIC ACID. [Concomitant]
     Active Substance: FOLIC ACID
     Route: 048
  10. SPIRIVA [Concomitant]
     Active Substance: TIOTROPIUM BROMIDE MONOHYDRATE
     Route: 045
  11. TAGAMET [Concomitant]
     Active Substance: CIMETIDINE
     Route: 065
  12. GEMZAR [Concomitant]
     Active Substance: GEMCITABINE HYDROCHLORIDE
     Route: 065
  13. PROCRIT [Concomitant]
     Active Substance: ERYTHROPOIETIN
     Route: 065
  14. MEGACE [Concomitant]
     Active Substance: MEGESTROL ACETATE
     Route: 048
  15. LORAZEPAM. [Concomitant]
     Active Substance: LORAZEPAM
     Route: 048
  16. TARCEVA [Suspect]
     Active Substance: ERLOTINIB HYDROCHLORIDE
     Indication: PRODUCT USED FOR UNKNOWN INDICATION
     Route: 048
     Dates: start: 20050517
  17. ARANESP [Concomitant]
     Active Substance: DARBEPOETIN ALFA
     Route: 065
  18. ENDOCET [Concomitant]
     Active Substance: ACETAMINOPHEN\OXYCODONE HYDROCHLORIDE
     Dosage: 5-325 MG
     Route: 048

REACTIONS (19)
  - Asthenia [Unknown]
  - Chest pain [Unknown]
  - Stomatitis [Unknown]
  - Dyspnoea [Unknown]
  - Vomiting [Unknown]
  - Constipation [Unknown]
  - Hypertension [Unknown]
  - Anaemia [Unknown]
  - Neuropathy peripheral [Unknown]
  - Headache [Unknown]
  - Abdominal pain upper [Unknown]
  - Fatigue [Unknown]
  - Tachycardia [Unknown]
  - Off label use [Unknown]
  - Vision blurred [Unknown]
  - Alopecia [Unknown]
  - Death [Fatal]
  - Anxiety [Unknown]
  - Nausea [Unknown]
